FAERS Safety Report 13601114 (Version 1)
Quarter: 2017Q2

REPORT INFORMATION
  Report Type: Spontaneous
  Country: PT (occurrence: PT)
  Receive Date: 20170601
  Receipt Date: 20170601
  Transmission Date: 20170830
  Serious: Yes (Other)
  Sender: FDA-Public Use
  Company Number: PT-BAYER-2017-100272

PATIENT
  Age: 26 Year
  Sex: Male

DRUGS (11)
  1. WARFARIN [Concomitant]
     Active Substance: WARFARIN
  2. AMOXICILLIN W/CLAVULANIC ACID [Concomitant]
     Active Substance: AMOXICILLIN\CLAVULANIC ACID
     Indication: RESPIRATORY TRACT INFECTION
  3. LISINOPRIL. [Concomitant]
     Active Substance: LISINOPRIL
  4. HEPARIN [Concomitant]
     Active Substance: HEPARIN SODIUM
  5. ACETYLSALICYLIC ACID({=100 MG) [Suspect]
     Active Substance: ASPIRIN
     Indication: LACUNAR INFARCTION
  6. OXCARBAZEPINE. [Concomitant]
     Active Substance: OXCARBAZEPINE
  7. ZONISAMIDE. [Concomitant]
     Active Substance: ZONISAMIDE
  8. VANCOMYCIN [Concomitant]
     Active Substance: VANCOMYCIN
     Indication: INFLAMMATORY MARKER INCREASED
  9. LEVETIRACETAM. [Concomitant]
     Active Substance: LEVETIRACETAM
  10. HYDROXYCHLOROQUINE [Concomitant]
     Active Substance: HYDROXYCHLOROQUINE
  11. VANCOMYCIN [Concomitant]
     Active Substance: VANCOMYCIN
     Indication: PYREXIA

REACTIONS (4)
  - Thrombotic microangiopathy [None]
  - Pulmonary oedema [None]
  - Splenic rupture [None]
  - Haematuria [None]
